FAERS Safety Report 8416899-8 (Version None)
Quarter: 2012Q2

REPORT INFORMATION
  Report Type: 
  Country: None (occurrence: None)
  Receive Date: 20120606
  Receipt Date: 20120601
  Transmission Date: 20120825
  Serious: Yes (Hospitalization)
  Sender: FDA-Public Use
  Company Number: PHEH2012US011238

PATIENT
  Age: 64 Year
  Sex: Female

DRUGS (3)
  1. EXEMESTANE [Concomitant]
  2. AFINITOR [Suspect]
     Indication: BREAST CANCER
     Dosage: 10 MG, EVERY OTHER DAY
     Route: 048
     Dates: start: 20120115, end: 20120501
  3. HERCEPTIN [Suspect]

REACTIONS (6)
  - NEOPLASM MALIGNANT [None]
  - PNEUMONIA [None]
  - PAIN [None]
  - NEOPLASM PROGRESSION [None]
  - MYOSITIS [None]
  - PLEURAL EFFUSION [None]
